FAERS Safety Report 10560427 (Version 4)
Quarter: 2015Q1

REPORT INFORMATION
  Report Type: Spontaneous
  Country: JP (occurrence: JP)
  Receive Date: 20141103
  Receipt Date: 20150129
  Transmission Date: 20150720
  Serious: Yes (Life-Threatening, Hospitalization)
  Sender: FDA-Public Use
  Company Number: JP-PFIZER INC-2014302011

PATIENT
  Age: 50 Year
  Sex: Female

DRUGS (9)
  1. AMLODIN [Suspect]
     Active Substance: AMLODIPINE BESYLATE
     Indication: SELF INJURIOUS BEHAVIOUR
  2. ROZEREM [Suspect]
     Active Substance: RAMELTEON
     Indication: SUICIDE ATTEMPT
     Dosage: 168 MG, DAILY
     Route: 048
     Dates: start: 20140818, end: 20140818
  3. NITRAZEPAM [Suspect]
     Active Substance: NITRAZEPAM
     Indication: SUICIDE ATTEMPT
     Dosage: 110 MG, DAILY
     Route: 048
     Dates: start: 20140818, end: 20140818
  4. ROZEREM [Suspect]
     Active Substance: RAMELTEON
     Indication: SELF INJURIOUS BEHAVIOUR
  5. MYSLEE [Concomitant]
     Active Substance: ZOLPIDEM TARTRATE
     Indication: INSOMNIA
     Dosage: 10 MG, 1X/DAY
     Route: 048
     Dates: start: 20140219, end: 20140817
  6. AMLODIN [Suspect]
     Active Substance: AMLODIPINE BESYLATE
     Indication: SUICIDE ATTEMPT
     Dosage: 580 MG, DAILY
     Route: 048
     Dates: start: 20140818, end: 20140818
  7. MICARDIS [Suspect]
     Active Substance: TELMISARTAN
     Indication: SUICIDE ATTEMPT
     Dosage: 1280 MG, DAILY
     Route: 048
     Dates: start: 20140818, end: 20140818
  8. MICARDIS [Suspect]
     Active Substance: TELMISARTAN
     Indication: SELF INJURIOUS BEHAVIOUR
  9. NITRAZEPAM [Suspect]
     Active Substance: NITRAZEPAM
     Indication: SELF INJURIOUS BEHAVIOUR

REACTIONS (3)
  - Renal disorder [Recovered/Resolved]
  - Overdose [Recovered/Resolved]
  - Hypotension [Recovered/Resolved]

NARRATIVE: CASE EVENT DATE: 20140818
